FAERS Safety Report 5126165-4 (Version None)
Quarter: 2006Q3

REPORT INFORMATION
  Report Type: 
  Country: None (occurrence: None)
  Receive Date: 20060823
  Receipt Date: 20051205
  Transmission Date: 20061208
  Serious: Yes (Other)
  Sender: FDA-Public Use
  Company Number: 2005165529

PATIENT
  Sex: Male

DRUGS (5)
  1. NORVASC [Suspect]
     Indication: ANGINA PECTORIS
     Dosage: 2.5 MG (2.5 MG, 1 IN 1 D)
  2. ISORDIL [Concomitant]
  3. TOPROL-XL [Concomitant]
  4. VASOTEC [Concomitant]
  5. ASPIRIN [Concomitant]

REACTIONS (2)
  - IMMUNE SYSTEM DISORDER [None]
  - THROMBOCYTOPENIA [None]
